FAERS Safety Report 8582082-9 (Version None)
Quarter: 2012Q3

REPORT INFORMATION
  Report Type: 
  Country: None (occurrence: None)
  Receive Date: 20120809
  Receipt Date: 20120806
  Transmission Date: 20120928
  Serious: Yes (Hospitalization, Other)
  Sender: FDA-Public Use
  Company Number: FR-PFIZER INC-2012190165

PATIENT
  Age: 48 Year
  Sex: Female

DRUGS (18)
  1. NOZINAN [Suspect]
     Indication: DEPRESSION
     Dosage: 25 MG, DAILY
     Route: 048
  2. DUPHASTON [Concomitant]
     Dosage: TWO TABLETS DAILY
  3. FENOFIBRATE [Concomitant]
     Dosage: 300 MG IN THE EVENING
  4. SORIATANE [Suspect]
     Dosage: 10 MG, DAILY
     Route: 048
     Dates: start: 20111130, end: 20120213
  5. ATARAX [Concomitant]
     Dosage: 150 MG, DAILY
  6. THERALENE [Suspect]
     Indication: DEPRESSION
     Dosage: 10 MG, DAILY
     Route: 048
  7. TRANSIPEG [Concomitant]
     Dosage: 5.9 G, 2X/DAY
  8. HAVLANE [Concomitant]
     Dosage: ONE TABLET DAILY
  9. SULFAREM [Concomitant]
     Dosage: FOUR TABLET DAILY
  10. NEXIUM [Concomitant]
     Dosage: 40 MG, 1X/DAY
  11. OXAZEPAM [Concomitant]
     Dosage: 50 MG, 2X/DAY
  12. ZOPICLONE [Concomitant]
     Dosage: 7.5 MG, 2X/DAY
  13. EFFEXOR XR [Suspect]
     Indication: DEPRESSION
     Dosage: 75 MG, 3X/DAY
     Route: 048
  14. SORIATANE [Suspect]
     Indication: ICHTHYOSIS
     Dosage: 20 MG, DAILY
     Route: 048
     Dates: end: 20111129
  15. VITAMIN A [Concomitant]
     Dosage: 25000 IU, 3X/DAY
  16. PRIMPERAN TAB [Concomitant]
     Dosage: 10 MG ONCE DAY MAXIMUM THREE TIMES A DAY
  17. CETIRIZINE [Concomitant]
     Dosage: 10 MG, 1X/DAY
  18. STRESAM [Concomitant]
     Dosage: UNK, 2X/DAY

REACTIONS (3)
  - HYPERTRIGLYCERIDAEMIA [None]
  - GENERAL PHYSICAL HEALTH DETERIORATION [None]
  - MICROCYTIC ANAEMIA [None]
